FAERS Safety Report 5650550-5 (Version None)
Quarter: 2008Q1

REPORT INFORMATION
  Report Type: 
  Country: None (occurrence: None)
  Receive Date: 20080305
  Receipt Date: 20080229
  Transmission Date: 20080703
  Serious: Yes (Death)
  Sender: FDA-Public Use
  Company Number: US-NOVOPROD-272753

PATIENT
  Age: 83 Year
  Sex: Female

DRUGS (1)
  1. NOVOSEVEN [Suspect]
     Indication: HAEMORRHAGE
     Dosage: 60 MG/KG, 2 DOSES
     Route: 042
     Dates: start: 20080201, end: 20080201

REACTIONS (1)
  - DEATH [None]
